FAERS Safety Report 5822953-7 (Version None)
Quarter: 2008Q3

REPORT INFORMATION
  Report Type: 
  Country: None (occurrence: None)
  Receive Date: 20080725
  Receipt Date: 20080721
  Transmission Date: 20090109
  Serious: Yes (Other)
  Sender: FDA-Public Use
  Company Number: A0567729A

PATIENT
  Sex: Female

DRUGS (5)
  1. COREG [Suspect]
     Dosage: 12.5MG TWICE PER DAY
     Route: 048
     Dates: start: 19930101
  2. ZESTRIL [Concomitant]
  3. ASPIRIN [Concomitant]
  4. VITAMIN TAB [Concomitant]
  5. LISINOPRIL [Concomitant]

REACTIONS (8)
  - AMNESIA [None]
  - BLOOD CHOLESTEROL INCREASED [None]
  - BLOOD TRIGLYCERIDES INCREASED [None]
  - FLUID RETENTION [None]
  - HEART RATE IRREGULAR [None]
  - PAIN [None]
  - RESPIRATORY TRACT CONGESTION [None]
  - SHOCK [None]
